FAERS Safety Report 9838137 (Version 1)
Quarter: 2013Q4

REPORT INFORMATION
  Report Type: Spontaneous
  Country: US (occurrence: None)
  Receive Date: 20131205
  Receipt Date: 20131205
  Transmission Date: 20140711
  Serious: Yes (Hospitalization, Other)
  Sender: FDA-Public Use
  Company Number: 163-POMAL-13092603

PATIENT
  Age: 63 Year
  Sex: Male

DRUGS (14)
  1. POMALYST [Suspect]
     Indication: PLASMA CELL MYELOMA
     Dosage: 4 MG ,  1 IN 1 D, PO
     Route: 048
     Dates: start: 20130404
  2. ACYCLOVIR (ACICLOVIR) (ACICLOVIR) [Concomitant]
  3. ASPIRIN (ACETYLSALICYLIC ACID) [Concomitant]
  4. ASPRIN (ACETYLSALYLCYLIC ACID) [Concomitant]
  5. BACTRIM (BACTRIM) (SULFAMETHOXAZOLE, TRIMETHOPRIM) [Concomitant]
  6. DEXAMETHASONE (DEXAMETHASONE) [Concomitant]
  7. METOPROLOL/ HYDROCHLOROTHIAZIDE (BELOC-ZOC COMP) [Concomitant]
  8. SIMVASTATIN (SIMVASTATIN) [Concomitant]
  9. CALCIUM (CALCIUM) [Concomitant]
  10. VITAMIN D (ERGOCALCIFEROL) [Concomitant]
  11. PROTONIX [Concomitant]
  12. VICODIN (VICODIN) [Concomitant]
  13. COUMADIN (WARFARIN SODIUM) [Concomitant]
  14. METOPROLOL XL (METOPROLOL) [Concomitant]

REACTIONS (4)
  - Neutropenia [None]
  - Thrombocytopenia [None]
  - Anaemia [None]
  - Plasma cell myeloma [None]
